FAERS Safety Report 26011595 (Version 1)
Quarter: 2025Q4

REPORT INFORMATION
  Report Type: Report from Study
  Country: CA (occurrence: CA)
  Receive Date: 20251107
  Receipt Date: 20251107
  Transmission Date: 20260118
  Serious: Yes (Other)
  Sender: REGENERON
  Company Number: CA-BAYER-2025A144599

PATIENT
  Sex: Male

DRUGS (1)
  1. EYLEA [Suspect]
     Active Substance: AFLIBERCEPT
     Indication: Retinal vein occlusion
     Dosage: UNK, SOLUTION FOR INJECTION IN PRE-FILLED SYRINGE, 114.3 MG/ML
     Dates: start: 20250916

REACTIONS (6)
  - Eye haemorrhage [Unknown]
  - Intraocular pressure increased [Unknown]
  - Headache [Recovered/Resolved]
  - Ocular discomfort [Recovered/Resolved]
  - Eye pain [Recovered/Resolved]
  - Off label use [Unknown]

NARRATIVE: CASE EVENT DATE: 20250916
